FAERS Safety Report 23097428 (Version 1)
Quarter: 2023Q4

REPORT INFORMATION
  Report Type: Spontaneous
  Country: US (occurrence: US)
  Receive Date: 20231023
  Receipt Date: 20231023
  Transmission Date: 20240110
  Serious: Yes (Other)
  Sender: FDA-Public Use
  Company Number: US-BAYER-2023A149418

PATIENT
  Age: 35 Year
  Sex: Female

DRUGS (3)
  1. ASPIRIN [Suspect]
     Active Substance: ASPIRIN
     Dosage: 162 MG
  2. DOXYLAMINE [Concomitant]
     Active Substance: DOXYLAMINE
  3. HYDROCORTISONE [Concomitant]
     Active Substance: HYDROCORTISONE

REACTIONS (4)
  - Pituitary apoplexy [None]
  - Pituitary haemorrhage [None]
  - Off label use [None]
  - Maternal exposure during pregnancy [None]
